FAERS Safety Report 11147121 (Version 3)
Quarter: 2015Q3

REPORT INFORMATION
  Report Type: Spontaneous
  Country: US (occurrence: US)
  Receive Date: 20150528
  Receipt Date: 20150903
  Transmission Date: 20151125
  Serious: No
  Sender: FDA-Public Use
  Company Number: US-009507513-1505USA000431

PATIENT
  Age: 31 Year
  Sex: Female
  Weight: 59.86 kg

DRUGS (2)
  1. NEXPLANON [Suspect]
     Active Substance: ETONOGESTREL
     Indication: CONTRACEPTION
     Dosage: 68MG/ ONE ROD PER 3 YEARS
     Route: 059
     Dates: start: 20141117, end: 20150212
  2. NEXPLANON [Suspect]
     Active Substance: ETONOGESTREL
     Indication: HAEMORRHAGE

REACTIONS (5)
  - Haemorrhage [Unknown]
  - Hypersensitivity [Not Recovered/Not Resolved]
  - Menorrhagia [Unknown]
  - Implant site rash [Unknown]
  - Implant site urticaria [Not Recovered/Not Resolved]

NARRATIVE: CASE EVENT DATE: 2015
